FAERS Safety Report 6979472-4 (Version None)
Quarter: 2010Q3

REPORT INFORMATION
  Report Type: 
  Country: None (occurrence: None)
  Receive Date: 20100910
  Receipt Date: 20100910
  Transmission Date: 20110219
  Serious: Yes (Other)
  Sender: FDA-Public Use
  Company Number: None

PATIENT
  Age: 63 Year
  Sex: Female
  Weight: 67.1324 kg

DRUGS (1)
  1. NASONEX [Suspect]
     Indication: MULTIPLE ALLERGIES
     Dosage: 1 SPRAY PER DAY DAILY X 3 DAYS
     Route: 045

REACTIONS (4)
  - ADENOIDITIS [None]
  - BRONCHITIS [None]
  - MALAISE [None]
  - VIRAL INFECTION [None]
